FAERS Safety Report 8363227-2 (Version None)
Quarter: 2012Q2

REPORT INFORMATION
  Report Type: 
  Country: None (occurrence: None)
  Receive Date: 20120516
  Receipt Date: 20120510
  Transmission Date: 20120825
  Serious: Yes (Hospitalization)
  Sender: FDA-Public Use
  Company Number: CH-PFIZER INC-2012113857

PATIENT
  Age: 79 Year
  Sex: Female

DRUGS (8)
  1. DEPAKENE [Interacting]
     Indication: EPILEPSY
     Dosage: 500 MG, 1X/DAY
     Route: 048
  2. NASONEX [Concomitant]
     Dosage: TWO PUSHES PER HOUR
     Route: 045
  3. CALCIUM W/COLECALCIFEROL [Concomitant]
     Dosage: UNK
     Route: 048
  4. SEROQUEL [Interacting]
     Indication: SCHIZOPHRENIA
     Dosage: 250 MG, 2X/DAY
     Route: 048
  5. ACETALGINE [Concomitant]
     Dosage: 500 MG, AS NEEDED
     Route: 048
  6. CODEINE SULFATE [Interacting]
     Indication: COUGH
     Dosage: 50 MG, 2X/DAY
     Route: 048
     Dates: start: 20120402, end: 20120406
  7. FOSAMAX [Concomitant]
     Dosage: 70 MG, WEEKLY
     Route: 048
  8. EFFEXOR [Suspect]
     Dosage: 75 MG, 1X/DAY
     Route: 048

REACTIONS (5)
  - BRADYPNOEA [None]
  - DRUG INTERACTION [None]
  - LOSS OF CONSCIOUSNESS [None]
  - HYPOTENSION [None]
  - TACHYCARDIA [None]
